FAERS Safety Report 20646108 (Version 2)
Quarter: 2023Q4

REPORT INFORMATION
  Report Type: Spontaneous
  Country: AU (occurrence: AU)
  Receive Date: 20220329
  Receipt Date: 20231027
  Transmission Date: 20240109
  Serious: Yes (Life-Threatening, Other)
  Sender: FDA-Public Use
  Company Number: AU-SA-2022SA100885

PATIENT
  Age: 43 Year
  Sex: Female

DRUGS (4)
  1. DOCETAXEL [Suspect]
     Active Substance: DOCETAXEL
     Indication: Breast cancer
     Dosage: UNK UNK, QCY (SOLUTION FOR INJECTION)
  2. FLUOROURACIL [Concomitant]
     Active Substance: FLUOROURACIL
     Indication: Breast cancer
     Dosage: UNK, QCY
  3. EPIRUBICIN [Concomitant]
     Active Substance: EPIRUBICIN
     Indication: Breast cancer
     Dosage: UNK, QCY
  4. CYCLOPHOSPHAMIDE [Concomitant]
     Active Substance: CYCLOPHOSPHAMIDE
     Indication: Breast cancer
     Dosage: UNK, QCY

REACTIONS (3)
  - Gastrointestinal ischaemia [Unknown]
  - Ischaemic hepatitis [Unknown]
  - Septic shock [Unknown]
